FAERS Safety Report 16223733 (Version 1)
Quarter: 2019Q2

REPORT INFORMATION
  Report Type: Spontaneous
  Country: US (occurrence: US)
  Receive Date: 20190422
  Receipt Date: 20190422
  Transmission Date: 20190711
  Serious: No
  Sender: FDA-Public Use
  Company Number: US-VERTEX PHARMACEUTICALS-2019-003496

PATIENT
  Sex: Female

DRUGS (4)
  1. PULMOZYME [Concomitant]
     Active Substance: DORNASE ALFA
  2. TOBI [Concomitant]
     Active Substance: TOBRAMYCIN
  3. SYMDEKO [Suspect]
     Active Substance: IVACAFTOR\TEZACAFTOR
     Indication: CYSTIC FIBROSIS
     Dosage: 100 MG TEZACAFTOR/150 MG IVACAFTOR AM; 150 MG IVACAFTOR PM
     Route: 048
     Dates: start: 20180702
  4. ENBREL [Concomitant]
     Active Substance: ETANERCEPT

REACTIONS (3)
  - Pain [Not Recovered/Not Resolved]
  - Infective pulmonary exacerbation of cystic fibrosis [Unknown]
  - Loss of personal independence in daily activities [Not Recovered/Not Resolved]

NARRATIVE: CASE EVENT DATE: 2019
